FAERS Safety Report 9706763 (Version 1)
Quarter: 2013Q4

REPORT INFORMATION
  Report Type: Spontaneous
  Country: US (occurrence: None)
  Receive Date: 20131122
  Receipt Date: 20131122
  Transmission Date: 20140711
  Serious: Yes (Death)
  Sender: FDA-Public Use
  Company Number: None

PATIENT
  Age: 49 Year
  Sex: Male
  Weight: 89.1 kg

DRUGS (2)
  1. BLEOMYCIN [Suspect]
     Indication: TESTIS CANCER
  2. BLEOMYCIN [Suspect]
     Indication: ANAEMIA

REACTIONS (2)
  - Pneumonitis [None]
  - Pneumomediastinum [None]
